APPROVED DRUG PRODUCT: HYDROCHLOROTHIAZIDE
Active Ingredient: HYDROCHLOROTHIAZIDE
Strength: 12.5MG
Dosage Form/Route: CAPSULE;ORAL
Application: A078391 | Product #001 | TE Code: AB
Applicant: JUBILANT CADISTA PHARMACEUTICALS INC
Approved: Feb 11, 2008 | RLD: No | RS: No | Type: RX